FAERS Safety Report 15722591 (Version 1)
Quarter: 2018Q4

REPORT INFORMATION
  Report Type: Spontaneous
  Country: US (occurrence: US)
  Receive Date: 20181214
  Receipt Date: 20181214
  Transmission Date: 20190205
  Serious: Yes (Death)
  Sender: FDA-Public Use
  Company Number: US-UNITED THERAPEUTICS-UNT-2018-020550

PATIENT
  Age: 62 Year
  Sex: Female
  Weight: 56.24 kg

DRUGS (1)
  1. TYVASO [Suspect]
     Active Substance: TREPROSTINIL
     Indication: PULMONARY ARTERIAL HYPERTENSION
     Dosage: 18-54 MICROGRAM, QID
     Dates: start: 20171207

REACTIONS (1)
  - Death [Fatal]

NARRATIVE: CASE EVENT DATE: 20181202
